FAERS Safety Report 9315896 (Version 2)
Quarter: 2013Q2

REPORT INFORMATION
  Report Type: Spontaneous
  Country: IE (occurrence: IE)
  Receive Date: 20130530
  Receipt Date: 20130621
  Transmission Date: 20140414
  Serious: Yes (Death, Other)
  Sender: FDA-Public Use
  Company Number: IE-ROCHE-1228838

PATIENT
  Sex: Male

DRUGS (1)
  1. LARIAM [Suspect]
     Indication: PROPHYLAXIS
     Route: 065

REACTIONS (4)
  - Completed suicide [Fatal]
  - Nasopharyngitis [Unknown]
  - Social avoidant behaviour [Not Recovered/Not Resolved]
  - Self injurious behaviour [Unknown]
